FAERS Safety Report 15230552 (Version 3)
Quarter: 2018Q3

REPORT INFORMATION
  Report Type: Report from Study
  Country: None (occurrence: US)
  Receive Date: 20180802
  Receipt Date: 20180928
  Transmission Date: 20181010
  Serious: Yes (Disabling, Other)
  Sender: FDA-Public Use
  Company Number: US-ABBVIE-18K-163-2383884-00

PATIENT
  Age: 62 Year
  Sex: Male
  Weight: 98.52 kg

DRUGS (9)
  1. CITALOPRAM [Concomitant]
     Active Substance: CITALOPRAM HYDROBROMIDE
     Indication: DEPRESSION
  2. LASIX [Concomitant]
     Active Substance: FUROSEMIDE
     Indication: CARDIAC DISORDER
  3. ASPIRIN. [Concomitant]
     Active Substance: ASPIRIN
     Indication: CARDIAC DISORDER
  4. GABAPENTIN. [Concomitant]
     Active Substance: GABAPENTIN
     Indication: DIABETES MELLITUS
  5. HUMIRA [Suspect]
     Active Substance: ADALIMUMAB
     Indication: PSORIASIS
     Route: 058
     Dates: start: 2015
  6. METOPROLOL. [Concomitant]
     Active Substance: METOPROLOL
     Indication: CARDIAC DISORDER
  7. OMEPRAZOLE. [Concomitant]
     Active Substance: OMEPRAZOLE
     Indication: GASTRIC DISORDER
  8. POTASSIUM [Concomitant]
     Active Substance: POTASSIUM
     Indication: MINERAL SUPPLEMENTATION
  9. ATORVASTATIN [Concomitant]
     Active Substance: ATORVASTATIN
     Indication: BLOOD CHOLESTEROL

REACTIONS (11)
  - Toe operation [Recovered/Resolved]
  - Arterial occlusive disease [Recovered/Resolved]
  - Haemoglobin decreased [Recovered/Resolved]
  - Pain in extremity [Recovering/Resolving]
  - Cardiac operation [Recovered/Resolved]
  - Foot deformity [Recovering/Resolving]
  - Depression [Unknown]
  - Chest pain [Recovered/Resolved]
  - Mobility decreased [Recovering/Resolving]
  - Procedural pain [Not Recovered/Not Resolved]
  - Carpal tunnel syndrome [Recovering/Resolving]

NARRATIVE: CASE EVENT DATE: 2015
